FAERS Safety Report 4596142-0 (Version None)
Quarter: 2005Q1

REPORT INFORMATION
  Report Type: 
  Country: None (occurrence: None)
  Receive Date: 20050302
  Receipt Date: 20050204
  Transmission Date: 20050727
  Serious: Yes (Hospitalization)
  Sender: FDA-Public Use
  Company Number: JP-ROCHE-394398

PATIENT
  Age: 40 Year
  Sex: Female

DRUGS (8)
  1. HORIZON [Suspect]
     Indication: HEADACHE
     Route: 048
     Dates: start: 20040111, end: 20040114
  2. PONTAL [Suspect]
     Indication: HEADACHE
     Route: 048
     Dates: start: 20040111, end: 20040114
  3. MARZULENE-S [Suspect]
     Indication: HEADACHE
     Route: 048
     Dates: start: 20040111, end: 20040114
  4. UNASYN [Suspect]
     Indication: SJOGREN'S SYNDROME
     Route: 041
     Dates: start: 20040102, end: 20040110
  5. SLOW-K [Concomitant]
     Indication: SJOGREN'S SYNDROME
     Route: 048
     Dates: start: 20040111
  6. SODIUM BICARBONATE [Concomitant]
     Indication: SJOGREN'S SYNDROME
     Route: 048
     Dates: start: 20040111
  7. GASTER [Concomitant]
     Indication: SJOGREN'S SYNDROME
     Route: 041
     Dates: start: 20040102, end: 20040107
  8. CALCICOL [Concomitant]
     Indication: SJOGREN'S SYNDROME
     Route: 041
     Dates: start: 20040102, end: 20040106

REACTIONS (4)
  - ASTHENIA [None]
  - LYMPHOCYTE STIMULATION TEST POSITIVE [None]
  - MYCOPLASMA INFECTION [None]
  - TOXIC EPIDERMAL NECROLYSIS [None]
